FAERS Safety Report 10968395 (Version 1)
Quarter: 2015Q1

REPORT INFORMATION
  Report Type: Spontaneous
  Country: GB (occurrence: GB)
  Receive Date: 20150330
  Receipt Date: 20150330
  Transmission Date: 20150721
  Serious: Yes (Other)
  Sender: FDA-Public Use
  Company Number: PHHY2015GB033609

PATIENT
  Age: 28 Year
  Sex: Male

DRUGS (1)
  1. FILGRASTIM [Suspect]
     Active Substance: FILGRASTIM
     Indication: PRODUCT USED FOR UNKNOWN INDICATION
     Dosage: 10 MG/KG, QD
     Route: 065

REACTIONS (5)
  - Blood creatinine increased [Recovered/Resolved]
  - Haematuria [Not Recovered/Not Resolved]
  - IgA nephropathy [Unknown]
  - Condition aggravated [Unknown]
  - Proteinuria [Not Recovered/Not Resolved]
